FAERS Safety Report 5509954-3 (Version None)
Quarter: 2007Q4

REPORT INFORMATION
  Report Type: 
  Country: None (occurrence: None)
  Receive Date: 20071107
  Receipt Date: 20071107
  Transmission Date: 20080405
  Serious: Yes (Other)
  Sender: FDA-Public Use
  Company Number: None

PATIENT
  Sex: Female

DRUGS (1)
  1. LUPRON DEPOT 7.5 MG KIT [Suspect]
     Indication: ENDOMETRIOSIS
     Dosage: INJECT 7.5MG MONTHLY IM
     Route: 030
     Dates: start: 20070628

REACTIONS (3)
  - EYE SWELLING [None]
  - HEADACHE [None]
  - SWELLING FACE [None]
